FAERS Safety Report 8802582 (Version 3)
Quarter: 2014Q1

REPORT INFORMATION
  Report Type: Report from Study
  Country: JP (occurrence: JP)
  Receive Date: 20120921
  Receipt Date: 20140117
  Transmission Date: 20141002
  Serious: Yes (Life-Threatening, Other)
  Sender: FDA-Public Use
  Company Number: JP-AMGEN-JPNCT2012059785

PATIENT
  Age: 82 Year
  Sex: Male
  Weight: 58 kg

DRUGS (22)
  1. DARBEPOETIN ALFA [Suspect]
     Indication: NEPHROGENIC ANAEMIA
     Dosage: 40 MUG, Q4WK
     Route: 058
     Dates: start: 20110824
  2. IRBETAN [Concomitant]
     Indication: NEPHROSCLEROSIS
     Dosage: UNK
     Route: 048
  3. IRRIBOW [Concomitant]
     Dosage: UNK
     Route: 048
  4. AMLODIPINE [Concomitant]
     Indication: NEPHROSCLEROSIS
     Dosage: UNK
     Route: 048
  5. TANATRIL [Concomitant]
     Indication: NEPHROSCLEROSIS
     Dosage: UNK
     Route: 048
  6. TAKEPRON [Concomitant]
     Dosage: UNK
     Route: 048
  7. PLETAAL [Concomitant]
     Dosage: UNK
     Route: 048
  8. ARGAMATE [Concomitant]
     Indication: NEPHROSCLEROSIS
     Dosage: UNK
     Route: 048
  9. FERROMIA [Concomitant]
     Indication: NEPHROSCLEROSIS
     Dosage: UNCERTAINTY
     Route: 048
  10. FERROMIA [Concomitant]
     Dosage: UNK
     Route: 048
  11. FERROMIA [Concomitant]
     Dosage: UNK
     Route: 048
  12. JUSO [Concomitant]
     Indication: NEPHROSCLEROSIS
     Dosage: UNK
     Route: 048
  13. BIOFERMIN [Concomitant]
     Dosage: UNK
     Route: 048
  14. SODIUM BICARBONATE [Concomitant]
     Indication: NEPHROSCLEROSIS
     Dosage: UNK
     Route: 048
  15. NORVASC [Concomitant]
     Indication: NEPHROSCLEROSIS
     Dosage: UNK
     Route: 048
  16. FLUITRAN [Concomitant]
     Indication: NEPHROSCLEROSIS
     Dosage: UNK
     Route: 048
  17. DIART [Concomitant]
     Indication: NEPHROSCLEROSIS
     Dosage: UNK
     Route: 048
  18. TANNALBIN [Concomitant]
     Dosage: UNK
     Route: 048
  19. ADONA                              /00056903/ [Concomitant]
     Indication: HAEMATURIA
     Dosage: UNK
     Route: 048
  20. OXYCONTIN [Concomitant]
     Indication: PAIN
     Dosage: UNK
     Route: 048
  21. PANTETHINE [Concomitant]
     Indication: CONSTIPATION
     Dosage: UNK
     Route: 048
  22. PURSENNIDE                         /00571901/ [Concomitant]
     Indication: CONSTIPATION
     Dosage: UNK
     Route: 048

REACTIONS (2)
  - Rectal cancer [Not Recovered/Not Resolved]
  - Prostate cancer [Recovered/Resolved]
